FAERS Safety Report 8767915 (Version 2)
Quarter: 2012Q4

REPORT INFORMATION
  Report Type: 
  Country: JP (occurrence: JP)
  Receive Date: 20120905
  Receipt Date: 20121106
  Transmission Date: 20130627
  Serious: Yes (Other)
  Sender: FDA-Public Use
  Company Number: PHHY2012JP076608

PATIENT
  Age: 41 Year
  Sex: Male

DRUGS (6)
  1. MIDAZOLAM SANDOZ [Suspect]
     Dosage: 150 mg, daily dose
     Route: 030
     Dates: start: 20120824
  2. FAMOTIDINE [Suspect]
     Dosage: 40 mg, daily dose
     Route: 042
     Dates: start: 20120820, end: 20120825
  3. PISULCIN [Suspect]
     Dosage: 9 g, daily dose
     Route: 042
     Dates: start: 20120821
  4. INTRALIPID [Suspect]
     Dosage: 100 ml, daily dose
     Route: 041
     Dates: start: 20120823
  5. SOLDEM 3A [Concomitant]
     Route: 041
     Dates: start: 20120823
  6. RASENAZOLIN [Concomitant]
     Dosage: 1 g, BID
     Route: 042
     Dates: start: 20120820, end: 20120820

REACTIONS (6)
  - Drug-induced liver injury [Not Recovered/Not Resolved]
  - Cholecystitis [Unknown]
  - Pyrexia [Unknown]
  - Aspartate aminotransferase increased [None]
  - Alanine aminotransferase increased [None]
  - Blood bilirubin increased [None]
